FAERS Safety Report 4604573-5 (Version None)
Quarter: 2005Q1

REPORT INFORMATION
  Report Type: 
  Country: None (occurrence: None)
  Receive Date: 20050310
  Receipt Date: 20041005
  Transmission Date: 20050727
  Serious: Yes (Hospitalization, Other)
  Sender: FDA-Public Use
  Company Number: ES-MERCK-0410ESP00040

PATIENT
  Age: 76 Year
  Sex: Female
  Weight: 56 kg

DRUGS (8)
  1. VIOXX [Suspect]
     Indication: OSTEOARTHRITIS
     Route: 048
     Dates: start: 20000101, end: 20041005
  2. ESCIN [Concomitant]
     Route: 065
  3. MELILOT AND RUTIN [Concomitant]
     Route: 065
  4. GINKGO BILOBA EXTRACT [Concomitant]
     Route: 065
  5. VITAMINS (UNSPECIFIED) [Concomitant]
     Route: 065
  6. CALCIUM (UNSPECIFIED) [Concomitant]
     Route: 065
  7. ACETAMINOPHEN [Concomitant]
     Indication: PYREXIA
     Route: 065
     Dates: start: 20030806
  8. AMOXICILLIN AND CLAVULANATE POTASSIUM [Concomitant]
     Indication: PYREXIA
     Route: 065
     Dates: start: 20030806

REACTIONS (14)
  - BURNS THIRD DEGREE [None]
  - CATARACT [None]
  - CEREBELLAR INFARCTION [None]
  - CEREBRAL ATROPHY [None]
  - CEREBRAL DISORDER [None]
  - CHOLESTASIS [None]
  - CONFUSIONAL STATE [None]
  - CULTURE POSITIVE [None]
  - DIARRHOEA [None]
  - FALL [None]
  - LARGE INTESTINAL ULCER [None]
  - MELAENA [None]
  - PYREXIA [None]
  - SKIN GRAFT [None]
